FAERS Safety Report 5237786-2 (Version None)
Quarter: 2007Q1

REPORT INFORMATION
  Report Type: 
  Country: None (occurrence: None)
  Receive Date: 20070214
  Receipt Date: 20070213
  Transmission Date: 20070707
  Serious: Yes (Other)
  Sender: FDA-Public Use
  Company Number: 200710637EU

PATIENT
  Age: 59 Year
  Sex: Female

DRUGS (1)
  1. NICORETTE [Suspect]
     Indication: SMOKING CESSATION THERAPY
     Dosage: 4MG FIFTEEN TIMES PER DAY
     Route: 002
     Dates: start: 20060701

REACTIONS (2)
  - DRUG INEFFECTIVE [None]
  - FAILURE OF IMPLANT [None]
